FAERS Safety Report 9167416 (Version 2)
Quarter: 2013Q1

REPORT INFORMATION
  Report Type: Spontaneous
  Country: GB (occurrence: None)
  Receive Date: 20130307
  Receipt Date: 20130315
  Transmission Date: 20140127
  Serious: Yes (Other)
  Sender: FDA-Public Use
  Company Number: 2013-03618

PATIENT
  Age: 45 Year
  Sex: Female

DRUGS (6)
  1. DIAZEPAM (WATSON LABORATORIES) (DIAZEPAM) UNK, UNKUNK [Suspect]
     Indication: PRODUCT USED FOR UNKNOWN INDICATION
  2. HALOPERIDOL [Suspect]
     Indication: PRODUCT USED FOR UNKNOWN INDICATION
  3. DROLEPTAN [Suspect]
     Indication: PRODUCT USED FOR UNKNOWN INDICATION
  4. DEPIXOL [Suspect]
     Indication: PRODUCT USED FOR UNKNOWN INDICATION
  5. VALIUM [Suspect]
     Indication: PRODUCT USED FOR UNKNOWN INDICATION
  6. SPARINE [Suspect]
     Indication: PRODUCT USED FOR UNKNOWN INDICATION

REACTIONS (7)
  - Suicide attempt [None]
  - Victim of child abuse [None]
  - Self injurious behaviour [None]
  - Intentional drug misuse [None]
  - Overdose [None]
  - Sedation [None]
  - Victim of chemical submission [None]
